FAERS Safety Report 6152155-9 (Version None)
Quarter: 2009Q2

REPORT INFORMATION
  Report Type: 
  Country: None (occurrence: None)
  Receive Date: 20090409
  Receipt Date: 20090409
  Transmission Date: 20091009
  Serious: Yes (Life-Threatening)
  Sender: FDA-Public Use
  Company Number: None

PATIENT
  Age: 57 Year
  Sex: Male
  Weight: 58.9676 kg

DRUGS (2)
  1. LIPITOR [Suspect]
     Indication: BLOOD CHOLESTEROL INCREASED
     Dosage: 50MG 1 PO
     Route: 048
     Dates: start: 20040101, end: 20060401
  2. RILUTEK [Concomitant]

REACTIONS (2)
  - AMYOTROPHIC LATERAL SCLEROSIS [None]
  - MUSCLE CONTRACTIONS INVOLUNTARY [None]
